FAERS Safety Report 8994328 (Version 1)
Quarter: 2013Q1

REPORT INFORMATION
  Report Type: Spontaneous
  Country: US (occurrence: US)
  Receive Date: 20130102
  Receipt Date: 20130102
  Transmission Date: 20140127
  Serious: No
  Sender: FDA-Public Use
  Company Number: US-AMGEN-USASP2012080819

PATIENT
  Age: 31 Year
  Sex: Female

DRUGS (2)
  1. ENBREL [Suspect]
     Indication: RHEUMATOID ARTHRITIS
     Dosage: 50 MG, QWK
     Dates: start: 20111212, end: 20121128
  2. ENBREL [Suspect]
     Indication: PSORIASIS

REACTIONS (4)
  - Pain [Not Recovered/Not Resolved]
  - Hypokinesia [Not Recovered/Not Resolved]
  - Nervousness [Not Recovered/Not Resolved]
  - Psoriasis [Not Recovered/Not Resolved]
